FAERS Safety Report 16642357 (Version 1)
Quarter: 2019Q3

REPORT INFORMATION
  Report Type: Spontaneous
  Country: US (occurrence: US)
  Receive Date: 20190728
  Receipt Date: 20190728
  Transmission Date: 20191004
  Serious: Yes (Other)
  Sender: FDA-Public Use
  Company Number: None

PATIENT
  Age: 36 Year
  Sex: Female
  Weight: 99 kg

DRUGS (3)
  1. DULOXETINE 30MG [Suspect]
     Active Substance: DULOXETINE
     Indication: ANXIETY
  2. DULOXETINE 30MG [Suspect]
     Active Substance: DULOXETINE
     Indication: DEPRESSION
  3. WELBUTRIM 300MG [Concomitant]

REACTIONS (11)
  - Weight increased [None]
  - Nausea [None]
  - Headache [None]
  - Chills [None]
  - Withdrawal syndrome [None]
  - Intentional product use issue [None]
  - Influenza like illness [None]
  - Blood cholesterol increased [None]
  - Nervousness [None]
  - Diarrhoea [None]
  - Pain [None]

NARRATIVE: CASE EVENT DATE: 20190728
